FAERS Safety Report 5575420-2 (Version None)
Quarter: 2007Q4

REPORT INFORMATION
  Report Type: 
  Country: None (occurrence: None)
  Receive Date: 20071227
  Receipt Date: 20071203
  Transmission Date: 20080405
  Serious: No
  Sender: FDA-Public Use
  Company Number: US-BOEHRINGER INGELHEIM PHARMACEUTICALS, INC.-2007-BP-25467BP

PATIENT
  Sex: Male

DRUGS (3)
  1. FLOMAX [Suspect]
     Indication: BENIGN PROSTATIC HYPERPLASIA
     Route: 048
     Dates: start: 20060101
  2. LORATADINE [Suspect]
     Indication: MULTIPLE ALLERGIES
     Route: 048
  3. ACETAMINOPHEN [Suspect]
     Indication: ARTHRALGIA

REACTIONS (3)
  - POLLAKIURIA [None]
  - THERAPEUTIC RESPONSE DECREASED [None]
  - URINARY RETENTION [None]
